FAERS Safety Report 6960831-0 (Version None)
Quarter: 2010Q3

REPORT INFORMATION
  Report Type: 
  Country: None (occurrence: None)
  Receive Date: 20100901
  Receipt Date: 20100823
  Transmission Date: 20110219
  Serious: Yes (Other)
  Sender: FDA-Public Use
  Company Number: GB-ROCHE-723317

PATIENT
  Age: 24 Year
  Sex: Male
  Weight: 62 kg

DRUGS (1)
  1. MIRCERA [Suspect]
     Indication: ANAEMIA
     Dosage: DRUG WITHDRAWN
     Route: 042
     Dates: start: 20100728, end: 20100728

REACTIONS (1)
  - DYSPNOEA [None]
